FAERS Safety Report 26078046 (Version 1)
Quarter: 2025Q4

REPORT INFORMATION
  Report Type: Spontaneous
  Country: US (occurrence: US)
  Receive Date: 20251122
  Receipt Date: 20251122
  Transmission Date: 20260119
  Serious: No
  Sender: DR REDDYS
  Company Number: None

PATIENT
  Age: 2 Decade
  Sex: Female

DRUGS (2)
  1. LORAZEPAM [Suspect]
     Active Substance: LORAZEPAM
     Indication: Catatonia
     Dosage: HIGH DOSE 40MG QDAY
     Dates: start: 2024, end: 2024
  2. LORAZEPAM [Suspect]
     Active Substance: LORAZEPAM
     Dosage: HIGH DOSE; GRADUALLY UP TITRATED TO 5MQ Q6H
     Dates: start: 202403, end: 2024

REACTIONS (1)
  - Sedation [Not Recovered/Not Resolved]

NARRATIVE: CASE EVENT DATE: 20240101
